FAERS Safety Report 15326950 (Version 3)
Quarter: 2018Q4

REPORT INFORMATION
  Report Type: Spontaneous
  Country: JP (occurrence: JP)
  Receive Date: 20180828
  Receipt Date: 20181115
  Transmission Date: 20190204
  Serious: Yes (Life-Threatening, Hospitalization, Other)
  Sender: FDA-Public Use
  Company Number: JP-FERRINGPH-2018FE04729

PATIENT

DRUGS (3)
  1. LUTINUS [Suspect]
     Active Substance: PROGESTERONE
     Indication: ASSISTED FERTILISATION
     Dosage: 100 MG, 3 TIMES DAILY
     Route: 067
     Dates: start: 20171023, end: 20171208
  2. ESTRANA [Concomitant]
     Active Substance: ESTRADIOL
     Indication: OESTROGEN REPLACEMENT THERAPY
     Dosage: 2.88 MG, UNK
     Route: 062
     Dates: start: 20171009, end: 20171208
  3. THYRADIN [Concomitant]
     Active Substance: LEVOTHYROXINE
     Indication: AUTOIMMUNE THYROIDITIS
     Dosage: 12.5 MG, UNK
     Route: 048
     Dates: start: 20170125

REACTIONS (4)
  - Abortion threatened [Unknown]
  - Bacteraemia [Recovered/Resolved]
  - Urinary tract infection [Unknown]
  - Abortion infected [Recovered/Resolved]

NARRATIVE: CASE EVENT DATE: 20171121
